FAERS Safety Report 8844247 (Version 1)
Quarter: 2012Q4

REPORT INFORMATION
  Report Type: 
  Country: US (occurrence: US)
  Receive Date: 20121017
  Receipt Date: 20121017
  Transmission Date: 20130627
  Serious: Yes (Hospitalization)
  Sender: FDA-Public Use
  Company Number: US-ACCORD-014938

PATIENT
  Age: 65 Year
  Sex: Female

DRUGS (1)
  1. DONEPEZIL [Suspect]
     Indication: ALZHEIMER^S DISEASE

REACTIONS (5)
  - Mania [Not Recovered/Not Resolved]
  - Executive dysfunction [None]
  - Memory impairment [None]
  - Dysgraphia [None]
  - Delusion of grandeur [None]
